FAERS Safety Report 11271504 (Version 2)
Quarter: 2015Q4

REPORT INFORMATION
  Report Type: Report from Study
  Country: US (occurrence: US)
  Receive Date: 20150714
  Receipt Date: 20151209
  Transmission Date: 20160304
  Serious: Yes (Disabling, Other)
  Sender: FDA-Public Use
  Company Number: US-GILEAD-2015-0159636

PATIENT
  Age: 61 Year
  Sex: Female

DRUGS (2)
  1. TENOFOVIR DISOPROXIL FUMARATE. [Suspect]
     Active Substance: TENOFOVIR DISOPROXIL FUMARATE
     Indication: HEPATITIS B
     Dosage: 300 MG, UNK
     Route: 048
     Dates: start: 201407
  2. INSULIN [Concomitant]
     Active Substance: INSULIN NOS

REACTIONS (15)
  - Myopathy [Unknown]
  - Dizziness [Unknown]
  - Haemorrhage [Unknown]
  - Alopecia [Unknown]
  - Muscle spasms [Unknown]
  - Impaired work ability [Unknown]
  - Unevaluable event [Unknown]
  - Muscle atrophy [Unknown]
  - Poor quality sleep [Unknown]
  - Thyroid disorder [Unknown]
  - Chills [Unknown]
  - Ketoacidosis [Unknown]
  - Vision blurred [Unknown]
  - Genital lesion [Unknown]
  - Skin exfoliation [Unknown]
